FAERS Safety Report 6586614-1 (Version None)
Quarter: 2010Q1

REPORT INFORMATION
  Report Type: 
  Country: None (occurrence: None)
  Receive Date: 20100217
  Receipt Date: 20090630
  Transmission Date: 20100710
  Serious: Yes (Hospitalization, Disabling, Other)
  Sender: FDA-Public Use
  Company Number: US-ALLERGAN-0904210US

PATIENT
  Age: 52 Year
  Sex: Female
  Weight: 45.351 kg

DRUGS (1)
  1. BOTOX COSMETIC [Suspect]
     Indication: SKIN WRINKLING
     Dosage: 44 UNITS, SINGLE
     Route: 030
     Dates: start: 20090320, end: 20090320

REACTIONS (3)
  - DIPLOPIA [None]
  - MIGRAINE [None]
  - NAUSEA [None]
